FAERS Safety Report 18184348 (Version 3)
Quarter: 2020Q3

REPORT INFORMATION
  Report Type: Report from Study
  Country: US (occurrence: US)
  Receive Date: 20200824
  Receipt Date: 20200911
  Transmission Date: 20201103
  Serious: Yes (Other)
  Sender: FDA-Public Use
  Company Number: NVSC2020US232834

PATIENT
  Sex: Female

DRUGS (1)
  1. ENTRESTO [Suspect]
     Active Substance: SACUBITRIL\VALSARTAN
     Indication: PRODUCT USED FOR UNKNOWN INDICATION
     Dosage: 1 DF, BID (49.51 MG)
     Route: 048

REACTIONS (3)
  - Chest pain [Recovering/Resolving]
  - Atrial fibrillation [Not Recovered/Not Resolved]
  - Ejection fraction decreased [Unknown]
